FAERS Safety Report 8882131 (Version 2)
Quarter: 2012Q4

REPORT INFORMATION
  Report Type: 
  Country: ES (occurrence: ES)
  Receive Date: 20121102
  Receipt Date: 20121130
  Transmission Date: 20130627
  Serious: Yes (Hospitalization)
  Sender: FDA-Public Use
  Company Number: ES-AMGEN-ESPSP2012068906

PATIENT
  Age: 93 Month
  Sex: Female

DRUGS (4)
  1. NEUPOGEN [Suspect]
     Indication: PROPHYLAXIS
     Dosage: 0.3 UNK, UNK
     Route: 065
     Dates: start: 20120131
  2. NERVINEX [Suspect]
     Indication: HERPES ZOSTER
     Dosage: 125 mg, qd ( 7 Comprimidos)
     Route: 048
     Dates: start: 20120302, end: 20120309
  3. ACFOL [Concomitant]
     Indication: FOLATE DEFICIENCY
     Dosage: 5 mg, qd (28 Comprimidos)
     Route: 048
     Dates: start: 2011
  4. AMLODIPIN BESILAT TEVA [Concomitant]
     Indication: HYPERTENSION
     Dosage: 5 mg, qd
     Route: 048
     Dates: start: 20120124

REACTIONS (5)
  - Hepatitis B [Unknown]
  - Splenomegaly [Unknown]
  - Hepatic lesion [Unknown]
  - Splenic lesion [Unknown]
  - Diverticulum intestinal [Unknown]
